FAERS Safety Report 6457243-5 (Version None)
Quarter: 2009Q4

REPORT INFORMATION
  Report Type: 
  Country: None (occurrence: None)
  Receive Date: 20091125
  Receipt Date: 20091112
  Transmission Date: 20100525
  Serious: Yes (Other)
  Sender: FDA-Public Use
  Company Number: AT-CELGENEUS-009-50794-09110997

PATIENT
  Sex: Male
  Weight: 83 kg

DRUGS (1)
  1. VIDAZA [Suspect]
     Route: 050
     Dates: start: 20081101, end: 20090201

REACTIONS (1)
  - COLON CANCER [None]
